FAERS Safety Report 10622035 (Version 1)
Quarter: 2014Q4

REPORT INFORMATION
  Report Type: Spontaneous
  Country: US (occurrence: US)
  Receive Date: 20141203
  Receipt Date: 20141203
  Transmission Date: 20150529
  Serious: No
  Sender: FDA-Public Use
  Company Number: US-TEVA-460594USA

PATIENT
  Age: 26 Year
  Sex: Female

DRUGS (1)
  1. JINTELI [Suspect]
     Active Substance: ETHINYL ESTRADIOL\NORETHINDRONE ACETATE
     Indication: CONTRACEPTION
     Dosage: 1 MG/5 MCG

REACTIONS (5)
  - Fluid retention [Unknown]
  - Headache [Unknown]
  - Irritability [Unknown]
  - Malaise [Unknown]
  - Drug ineffective [Unknown]
